FAERS Safety Report 5627342-6 (Version None)
Quarter: 2008Q1

REPORT INFORMATION
  Report Type: 
  Country: None (occurrence: None)
  Receive Date: 20080128
  Receipt Date: 20071001
  Transmission Date: 20080703
  Serious: Yes (Hospitalization)
  Sender: FDA-Public Use
  Company Number: 013206

PATIENT
  Age: 57 Year
  Sex: Female

DRUGS (3)
  1. PRIALT [Suspect]
     Indication: BACK PAIN
     Dosage: 0.25 UG, ONCE/HOUR, INTRATHECAL ; 0.125 UG, ONCE/HOUR, INTRATHECAL ; ONCE/HOUR, INTRATHECAL
     Route: 037
     Dates: start: 20070316
  2. PRIALT [Suspect]
     Indication: BACK PAIN
     Dosage: 0.25 UG, ONCE/HOUR, INTRATHECAL ; 0.125 UG, ONCE/HOUR, INTRATHECAL ; ONCE/HOUR, INTRATHECAL
     Route: 037
     Dates: start: 20070830
  3. DILAUDID [Concomitant]

REACTIONS (1)
  - PARANOIA [None]
